FAERS Safety Report 21290318 (Version 1)
Quarter: 2022Q3

REPORT INFORMATION
  Report Type: Spontaneous
  Country: CA (occurrence: CA)
  Receive Date: 20220902
  Receipt Date: 20220902
  Transmission Date: 20221026
  Serious: Yes (Hospitalization, Other)
  Sender: FDA-Public Use
  Company Number: CA-PFIZER INC-202201104359

PATIENT
  Age: 48 Year
  Sex: Female

DRUGS (16)
  1. SULFASALAZINE [Suspect]
     Active Substance: SULFASALAZINE
     Indication: Still^s disease
     Dosage: 1 DF, DOSAGE INFO:  UNKNOWN
     Route: 065
  2. ACTEMRA [Concomitant]
     Active Substance: TOCILIZUMAB
     Dosage: UNK
  3. ANAKINRA [Concomitant]
     Active Substance: ANAKINRA
     Dosage: UNK UNK, DAILY
     Dates: end: 202108
  4. ANAKINRA [Concomitant]
     Active Substance: ANAKINRA
     Dosage: UNK UNK, 1X/DAY
  5. COLCHICINE [Concomitant]
     Active Substance: COLCHICINE
     Dosage: UNK
  6. CANAKINUMAB [Concomitant]
     Active Substance: CANAKINUMAB
     Dosage: UNK
  7. ELAVIL [Concomitant]
     Active Substance: AMITRIPTYLINE HYDROCHLORIDE
     Dosage: 10 MG, AS NEEDED
     Route: 048
  8. ESOMEPRAZOLE MAGNESIUM [Concomitant]
     Active Substance: ESOMEPRAZOLE MAGNESIUM
     Dosage: 40 MG, 1X/DAY
     Route: 048
  9. HULIO [Concomitant]
     Active Substance: ADALIMUMAB-FKJP
     Dosage: UNK
  10. KINERET [Concomitant]
     Active Substance: ANAKINRA
     Dosage: 100 MG, 2X/DAY, 100 MG/0.67 ML INJECTION,
  11. PREDNISONE [Concomitant]
     Active Substance: PREDNISONE
     Dosage: UNK
     Dates: end: 201812
  12. PREDNISONE [Concomitant]
     Active Substance: PREDNISONE
     Dosage: 1 DF
     Route: 065
  13. PLAQUENIL [Concomitant]
     Active Substance: HYDROXYCHLOROQUINE SULFATE
     Dosage: UNK
  14. SYNTHROID [Concomitant]
     Active Substance: LEVOTHYROXINE SODIUM
     Dosage: 200 UG, 1X/DAY
     Route: 048
  15. SYMBICORT [Concomitant]
     Active Substance: BUDESONIDE\FORMOTEROL FUMARATE DIHYDRATE
     Dosage: UNK, 100-6 MCG/ACTUATION
  16. VENTOLIN HFA [Concomitant]
     Active Substance: ALBUTEROL SULFATE
     Dosage: UNK UNK, AS NEEDED
     Route: 055

REACTIONS (30)
  - Pyrexia [Not Recovered/Not Resolved]
  - Headache [Not Recovered/Not Resolved]
  - Back pain [Not Recovered/Not Resolved]
  - Cytopenia [Not Recovered/Not Resolved]
  - Acute kidney injury [Unknown]
  - Haemodialysis [Unknown]
  - Renal tubular necrosis [Unknown]
  - Thrombocytopenia [Unknown]
  - Haemolysis [Unknown]
  - Haemophagocytic lymphohistiocytosis [Unknown]
  - Pulmonary embolism [Unknown]
  - Interstitial lung disease [Unknown]
  - Lymphadenopathy [Unknown]
  - Condition aggravated [Unknown]
  - Blood lactate dehydrogenase increased [Unknown]
  - Serum ferritin increased [Unknown]
  - Hepatosplenomegaly [Unknown]
  - Hypertension [Unknown]
  - Arthritis [Unknown]
  - Pain [Unknown]
  - Productive cough [Unknown]
  - Dyspnoea [Unknown]
  - Chest pain [Unknown]
  - Hyperhidrosis [Unknown]
  - Wrist deformity [Unknown]
  - Crepitations [Unknown]
  - Crepitations [Unknown]
  - Blood creatine phosphokinase decreased [Unknown]
  - Deformity [Unknown]
  - Off label use [Unknown]

NARRATIVE: CASE EVENT DATE: 20210301
